FAERS Safety Report 11494244 (Version 1)
Quarter: 2015Q3

REPORT INFORMATION
  Report Type: Spontaneous
  Country: US (occurrence: US)
  Receive Date: 20150911
  Receipt Date: 20150911
  Transmission Date: 20151125
  Serious: No
  Sender: FDA-Public Use
  Company Number: US-ROCHE-773501

PATIENT
  Age: 51 Year
  Sex: Male

DRUGS (2)
  1. PEGASYS [Suspect]
     Active Substance: PEGINTERFERON ALFA-2A
     Indication: HEPATITIS C
     Route: 058
     Dates: start: 20110419, end: 20110925
  2. COPEGUS [Suspect]
     Active Substance: RIBAVIRIN
     Indication: HEPATITIS C
     Dosage: IN DIVIDED DOSES
     Route: 065
     Dates: start: 20110419, end: 20110925

REACTIONS (10)
  - Insomnia [Not Recovered/Not Resolved]
  - Feeling abnormal [Unknown]
  - Influenza like illness [Unknown]
  - Ecchymosis [Unknown]
  - Proctalgia [Not Recovered/Not Resolved]
  - Oedema [Unknown]
  - Tremor [Unknown]
  - Diarrhoea [Unknown]
  - Mass [Not Recovered/Not Resolved]
  - Dry skin [Not Recovered/Not Resolved]

NARRATIVE: CASE EVENT DATE: 20110419
